FAERS Safety Report 10206605 (Version 4)
Quarter: 2016Q2

REPORT INFORMATION
  Report Type: Spontaneous
  Country: US (occurrence: US)
  Receive Date: 20140530
  Receipt Date: 20160623
  Transmission Date: 20160815
  Serious: Yes (Hospitalization, Other)
  Sender: FDA-Public Use
  Company Number: US-GLAXOSMITHKLINE-A1059121A

PATIENT
  Age: 27 Year
  Sex: Female

DRUGS (5)
  1. ADCIRCA [Concomitant]
     Active Substance: TADALAFIL
  2. FLOLAN [Suspect]
     Active Substance: EPOPROSTENOL SODIUM
     Dosage: 12 NG/KG/MINUTE, 10,000NG/ML, PUMP RATE 55 ML/DAY, VIAL STRENGTH 0.5 MG/ML
     Route: 042
     Dates: start: 20130815
  3. WARFARIN [Concomitant]
     Active Substance: WARFARIN
  4. FLOLAN [Suspect]
     Active Substance: EPOPROSTENOL SODIUM
     Indication: PULMONARY ARTERIAL HYPERTENSION
     Dosage: 7NG/KG/MIN, CONCENTRATION 5000NG/ML, VIAL STRENGTH 1.5 CONTINUOUS INFUSION
     Route: 042
     Dates: start: 20130822
  5. FLOLAN [Suspect]
     Active Substance: EPOPROSTENOL SODIUM
     Dosage: 12 NG/KG/MIN, CONTINUOUSLY
     Dates: start: 20130815

REACTIONS (4)
  - Catheter site haemorrhage [Recovered/Resolved]
  - Complication associated with device [Recovered/Resolved]
  - Device dislocation [Unknown]
  - Diarrhoea [Recovered/Resolved]

NARRATIVE: CASE EVENT DATE: 20140113
